FAERS Safety Report 22767786 (Version 2)
Quarter: 2023Q4

REPORT INFORMATION
  Report Type: Report from Study
  Country: JP (occurrence: None)
  Receive Date: 20230731
  Receipt Date: 20231211
  Transmission Date: 20240110
  Serious: Yes (Life-Threatening)
  Sender: FDA-Public Use
  Company Number: 2023A133897

PATIENT
  Age: 64 Year
  Sex: Male
  Weight: 53 kg

DRUGS (4)
  1. IMJUDO [Suspect]
     Active Substance: TREMELIMUMAB\TREMELIMUMAB-ACTL
     Indication: Non-small cell lung cancer
     Dosage: DOSE UNKNOWN75.0MG UNKNOWN
     Route: 041
     Dates: start: 20230523, end: 20230523
  2. IMFINZI [Suspect]
     Active Substance: DURVALUMAB
     Indication: Non-small cell lung cancer
     Dosage: DOSE UNKNOWN1500.0MG UNKNOWN
     Route: 041
     Dates: start: 20230523, end: 20230523
  3. CARBOPLATIN [Suspect]
     Active Substance: CARBOPLATIN
     Indication: Non-small cell lung cancer
     Dosage: DOSE UNKNOWN
  4. ABRAXANE [Suspect]
     Active Substance: PACLITAXEL
     Indication: Non-small cell lung cancer
     Dosage: DOSE UNKNOWN

REACTIONS (3)
  - Immune-mediated enterocolitis [Recovering/Resolving]
  - Haematochezia [Unknown]
  - Myelosuppression [Recovered/Resolved]

NARRATIVE: CASE EVENT DATE: 20230101
